FAERS Safety Report 5131881-4 (Version None)
Quarter: 2006Q4

REPORT INFORMATION
  Report Type: 
  Country: None (occurrence: None)
  Receive Date: 20061016
  Receipt Date: 20061002
  Transmission Date: 20070319
  Serious: Yes (Other)
  Sender: FDA-Public Use
  Company Number: 2006119142

PATIENT
  Age: 69 Year
  Sex: Female
  Weight: 47.6277 kg

DRUGS (3)
  1. LYRICA [Suspect]
     Indication: PAIN
     Dosage: 400 MG (200 MG 2 IN 1 D), ORAL
     Route: 048
     Dates: start: 20060101
  2. CYMBALTA [Concomitant]
  3. TRAZODONE HCL [Concomitant]

REACTIONS (6)
  - AGEUSIA [None]
  - ANXIETY [None]
  - FATIGUE [None]
  - FEELING ABNORMAL [None]
  - HEADACHE [None]
  - VISION BLURRED [None]
